FAERS Safety Report 7309871 (Version 4)
Quarter: 2012Q4

REPORT INFORMATION
  Report Type: 
  Country: CA (occurrence: CA)
  Receive Date: 20100309
  Receipt Date: 20121111
  Transmission Date: 20130627
  Serious: Yes (Death, Other)
  Sender: FDA-Public Use
  Company Number: PHHY2009CA16896

PATIENT
  Sex: Male

DRUGS (2)
  1. SANDOSTATIN LAR [Suspect]
     Indication: CARCINOID TUMOUR
     Dosage: 20 mg every 4 weeks
     Route: 030
     Dates: start: 20050222
  2. SANDOSTATIN LAR [Suspect]
     Dosage: 30 mg, Every 4 weeks
     Route: 030
     Dates: end: 20120327

REACTIONS (6)
  - Death [Fatal]
  - Blood pressure increased [Unknown]
  - Injection site pain [Unknown]
  - Pain [Unknown]
  - Walking disability [Unknown]
  - Heart rate decreased [Unknown]
